FAERS Safety Report 4382048-9 (Version None)
Quarter: 2004Q2

REPORT INFORMATION
  Report Type: 
  Country: None (occurrence: None)
  Receive Date: 20040621
  Receipt Date: 20040526
  Transmission Date: 20050107
  Serious: Yes (Hospitalization)
  Sender: FDA-Public Use
  Company Number: US-MERCK-0405USA01992

PATIENT
  Age: 51 Year
  Sex: Male

DRUGS (4)
  1. WELCHOL [Concomitant]
     Route: 065
  2. ZETIA [Suspect]
     Indication: BLOOD CHOLESTEROL INCREASED
     Route: 048
     Dates: start: 20030301, end: 20040129
  3. INTERFERON (UNSPECIFIED) [Concomitant]
     Route: 065
  4. ZOCOR [Concomitant]
     Route: 048

REACTIONS (1)
  - PANCREATITIS ACUTE [None]
